FAERS Safety Report 16303293 (Version 1)
Quarter: 2019Q2

REPORT INFORMATION
  Report Type: Spontaneous
  Country: US (occurrence: US)
  Receive Date: 20190513
  Receipt Date: 20190513
  Transmission Date: 20190711
  Serious: No
  Sender: FDA-Public Use
  Company Number: US-TEVA-2019-US-1043001

PATIENT

DRUGS (1)
  1. CABERGOLINE. [Suspect]
     Active Substance: CABERGOLINE
     Dosage: DOSE: HALF A TABLET TWICE PER WEEK
     Route: 065

REACTIONS (2)
  - Therapeutic product effect variable [Unknown]
  - Wrong technique in product usage process [Unknown]
